FAERS Safety Report 12436085 (Version 1)
Quarter: 2016Q2

REPORT INFORMATION
  Report Type: Spontaneous
  Country: HU (occurrence: HU)
  Receive Date: 20160604
  Receipt Date: 20160604
  Transmission Date: 20160815
  Serious: Yes (Hospitalization)
  Sender: FDA-Public Use
  Company Number: HU-AMGEN-HUNSP2016070460

PATIENT
  Age: 43 Year
  Sex: Male
  Weight: 95 kg

DRUGS (8)
  1. LEFLUNOMID SANDOZ [Concomitant]
     Indication: RHEUMATOID ARTHRITIS
     Dosage: 10 MG, 1 IN THE MORNING, STARTED 8 YEARS AGO
  2. RAWEL [Concomitant]
     Indication: HYPERTENSION
     Dosage: 1.5 MG, 1 IN THE MORNING, STARTED 6 YEARS AGO
  3. VITAMIN D3 [Concomitant]
     Active Substance: CHOLECALCIFEROL
     Indication: BONE DISORDER
     Dosage: 3000 IU, 2X/WEEK 1X1, STARTED 3 YEARS AGO
  4. MEDROL [Concomitant]
     Active Substance: METHYLPREDNISOLONE
     Indication: RHEUMATOID ARTHRITIS
     Dosage: 4 MG, ALTERNATE DAY 1X1, STARTED 1.5 YEARS AGO
  5. RAMIPRIL HEXAL [Concomitant]
     Active Substance: RAMIPRIL
     Indication: CARDIAC DISORDER
     Dosage: 5 MG, 2X1, STARTED 5 YEARS AGO
  6. TENOX [Concomitant]
     Active Substance: TEMAZEPAM
     Indication: HYPERTENSION
     Dosage: 5 MG, 1 IN THE MORNING, STARTED 6 YEARS AGO
  7. NEBIVOLOL SANDOZ [Concomitant]
     Indication: ARRHYTHMIA
     Dosage: 5 MG, 1 IN THE MORNING, STARTED 1 YEAR AGO
  8. ENBREL [Suspect]
     Active Substance: ETANERCEPT
     Indication: RHEUMATOID ARTHRITIS
     Dosage: 50 MG, WEEKLY 1X1 INJECTION (SATURDAY), STARTED 3 YEARS AGO
     Route: 065

REACTIONS (1)
  - Haemorrhoids [Recovered/Resolved]

NARRATIVE: CASE EVENT DATE: 20160418
